FAERS Safety Report 7033409-0 (Version None)
Quarter: 2010Q4

REPORT INFORMATION
  Report Type: 
  Country: None (occurrence: None)
  Receive Date: 20101007
  Receipt Date: 20100929
  Transmission Date: 20110411
  Serious: Yes (Death)
  Sender: FDA-Public Use
  Company Number: US-MILLENNIUM PHARMACEUTICALS, INC.-2010-05034

PATIENT
  Sex: Male

DRUGS (1)
  1. VELCADE [Suspect]
     Indication: PRODUCT USED FOR UNKNOWN INDICATION
     Dosage: UNK
     Route: 042
     Dates: start: 20100806

REACTIONS (1)
  - DEATH [None]
